FAERS Safety Report 23529325 (Version 1)
Quarter: 2024Q1

REPORT INFORMATION
  Report Type: Spontaneous
  Country: PL (occurrence: PL)
  Receive Date: 20240216
  Receipt Date: 20240216
  Transmission Date: 20240409
  Serious: Yes (Other)
  Sender: FDA-Public Use
  Company Number: None

PATIENT
  Age: 77 Year
  Sex: Female
  Weight: 84 kg

DRUGS (4)
  1. OXALIPLATIN [Suspect]
     Active Substance: OXALIPLATIN
     Indication: Colon cancer
     Dosage: DOSE: 162.35 UNITS UNKNOWN.
     Route: 042
     Dates: start: 20190910, end: 20190910
  2. FLUOROURACIL [Suspect]
     Active Substance: FLUOROURACIL
     Indication: Colon cancer
     Dosage: DOSE: 1146 UNITS UNKNOWN.
     Route: 042
     Dates: start: 20190910, end: 20190910
  3. FLUOROURACIL [Suspect]
     Active Substance: FLUOROURACIL
     Indication: Colon cancer
     Dosage: DOSE: 764 UNITS UNKNOWN.
     Route: 042
     Dates: start: 20190910, end: 20190910
  4. LEUCOVORIN CALCIUM [Suspect]
     Active Substance: LEUCOVORIN CALCIUM
     Indication: Colon cancer
     Dosage: DOSE: 382 UNITS UNKNOWN.
     Route: 042
     Dates: start: 20190910, end: 20190910

REACTIONS (1)
  - Neutropenia [Unknown]

NARRATIVE: CASE EVENT DATE: 20191001
